FAERS Safety Report 21188957 (Version 1)
Quarter: 2022Q3

REPORT INFORMATION
  Report Type: Spontaneous
  Country: US (occurrence: None)
  Receive Date: 20220809
  Receipt Date: 20220809
  Transmission Date: 20221027
  Serious: No
  Sender: FDA-Public Use
  Company Number: US-ROCHE-3081166

PATIENT
  Sex: Female

DRUGS (1)
  1. EVRYSDI [Suspect]
     Active Substance: RISDIPLAM
     Indication: Rash
     Route: 065

REACTIONS (1)
  - Asthenia [Unknown]
